FAERS Safety Report 6682683-9 (Version None)
Quarter: 2010Q2

REPORT INFORMATION
  Report Type: 
  Country: None (occurrence: None)
  Receive Date: 20100413
  Receipt Date: 20100331
  Transmission Date: 20101027
  Serious: Yes (Congenital Anomaly)
  Sender: FDA-Public Use
  Company Number: 2010AL002082

PATIENT
  Sex: Male
  Weight: 2.7851 kg

DRUGS (7)
  1. METFORMIN HCL [Suspect]
     Indication: DRUG EXPOSURE DURING PREGNANCY
     Dosage: TRPL
     Route: 064
     Dates: start: 20090101
  2. BUSPIRONE HYDROCHLORIDE TABLETS, UPS 30MG (ATLLC) [Suspect]
     Indication: DRUG EXPOSURE DURING PREGNANCY
     Dosage: TRPL
     Route: 064
     Dates: start: 20090101
  3. LEVOTHYROXINE SODIUM [Concomitant]
  4. PROVIGIL [Concomitant]
  5. LEXAPRO [Concomitant]
  6. NASONEX [Concomitant]
  7. OB NATAL [Concomitant]

REACTIONS (4)
  - CYANOSIS NEONATAL [None]
  - MATERNAL DRUGS AFFECTING FOETUS [None]
  - TRANSPOSITION OF THE GREAT VESSELS [None]
  - VENTRICULAR SEPTAL DEFECT [None]
